FAERS Safety Report 11913807 (Version 3)
Quarter: 2016Q1

REPORT INFORMATION
  Report Type: Spontaneous
  Country: US (occurrence: US)
  Receive Date: 20160113
  Receipt Date: 20160223
  Transmission Date: 20160526
  Serious: Yes (Hospitalization)
  Sender: FDA-Public Use
  Company Number: US-JNJFOC-20160103906

PATIENT
  Age: 92 Year
  Sex: Male

DRUGS (8)
  1. XARELTO [Suspect]
     Active Substance: RIVAROXABAN
     Indication: THROMBOSIS
     Route: 048
     Dates: start: 2015
  2. RISPERDAL [Suspect]
     Active Substance: RISPERIDONE
     Indication: PRODUCT USED FOR UNKNOWN INDICATION
     Route: 048
     Dates: start: 20151225
  3. MODAFINIL. [Concomitant]
     Active Substance: MODAFINIL
     Route: 048
  4. GALANTAMINE. [Suspect]
     Active Substance: GALANTAMINE
     Indication: VASCULAR DEMENTIA
     Route: 048
     Dates: start: 2013
  5. AMLODIPINE [Concomitant]
     Active Substance: AMLODIPINE BESYLATE
     Route: 048
  6. ATENOLOL. [Concomitant]
     Active Substance: ATENOLOL
     Route: 048
  7. FUROSEMIDE. [Concomitant]
     Active Substance: FUROSEMIDE
     Route: 048
  8. ALLOPURINOL. [Concomitant]
     Active Substance: ALLOPURINOL
     Indication: GOUT
     Route: 048

REACTIONS (13)
  - Haemorrhage [Unknown]
  - Weight increased [Not Recovered/Not Resolved]
  - Gait disturbance [Not Recovered/Not Resolved]
  - Eating disorder symptom [Not Recovered/Not Resolved]
  - Thirst [Unknown]
  - Contusion [Unknown]
  - Fall [Unknown]
  - Speech disorder [Unknown]
  - Lethargy [Unknown]
  - Motor dysfunction [Unknown]
  - Dementia [Unknown]
  - Adverse event [Unknown]
  - Hypersomnia [Unknown]

NARRATIVE: CASE EVENT DATE: 2015
